FAERS Safety Report 10148988 (Version 2)
Quarter: 2014Q2

REPORT INFORMATION
  Report Type: Report from Study
  Country: US (occurrence: US)
  Receive Date: 20140502
  Receipt Date: 20140508
  Transmission Date: 20141212
  Serious: Yes (Death, Hospitalization)
  Sender: FDA-Public Use
  Company Number: US-BRISTOL-MYERS SQUIBB COMPANY-20668141

PATIENT
  Age: 57 Year
  Sex: Male
  Weight: 76.7 kg

DRUGS (5)
  1. IPILIMUMAB [Suspect]
     Indication: MALIGNANT MELANOMA
     Route: 042
     Dates: start: 20140317, end: 20140419
  2. ALEVE [Concomitant]
     Dates: start: 20140210
  3. ZOFRAN [Concomitant]
     Dates: start: 20140219
  4. ACETAMINOPHEN + HYDROCODONE [Concomitant]
     Dates: start: 20140304
  5. PROMETHAZINE [Concomitant]
     Dates: start: 20140321

REACTIONS (2)
  - Malignant neoplasm progression [Fatal]
  - Nausea [Not Recovered/Not Resolved]
